APPROVED DRUG PRODUCT: NALBUPHINE HYDROCHLORIDE
Active Ingredient: NALBUPHINE HYDROCHLORIDE
Strength: 200MG/10ML (20MG/ML)
Dosage Form/Route: SOLUTION;INTRAMUSCULAR, INTRAVENOUS, SUBCUTANEOUS
Application: A206506 | Product #002
Applicant: RISING PHARMA HOLDINGS INC
Approved: Feb 6, 2019 | RLD: No | RS: No | Type: DISCN